FAERS Safety Report 10939727 (Version 2)
Quarter: 2015Q1

REPORT INFORMATION
  Report Type: Spontaneous
  Country: US (occurrence: None)
  Receive Date: 20150212
  Receipt Date: 20150212
  Transmission Date: 20150721
  Serious: No
  Sender: FDA-Public Use
  Company Number: TPA2011A04562

PATIENT
  Age: 59 Year
  Sex: Male
  Weight: 83.92 kg

DRUGS (5)
  1. INDOMETHACIN (INDOMETACIN) [Suspect]
     Active Substance: INDOMETHACIN
     Indication: PAIN
     Route: 048
  2. ULORIC [Suspect]
     Active Substance: FEBUXOSTAT
     Route: 048
     Dates: start: 20110308, end: 20110620
  3. CRESTOR [Concomitant]
     Active Substance: ROSUVASTATIN CALCIUM
  4. ULORIC [Suspect]
     Active Substance: FEBUXOSTAT
     Indication: BLOOD URIC ACID INCREASED
     Route: 048
     Dates: start: 20110308, end: 20110620
  5. INDOMETHACIN (INDOMETACIN) [Suspect]
     Active Substance: INDOMETHACIN
     Indication: GOUT
     Route: 048

REACTIONS (1)
  - Gout [None]

NARRATIVE: CASE EVENT DATE: 2011
